FAERS Safety Report 20221229 (Version 1)
Quarter: 2021Q4

REPORT INFORMATION
  Report Type: Spontaneous
  Country: SE (occurrence: SE)
  Receive Date: 20211223
  Receipt Date: 20211223
  Transmission Date: 20220303
  Serious: Yes (Hospitalization)
  Sender: FDA-Public Use
  Company Number: None

PATIENT
  Age: 70 Year
  Sex: Male

DRUGS (10)
  1. ANTABUSE [Suspect]
     Active Substance: DISULFIRAM
     Indication: Alcoholism
     Dosage: DOSAGE: 400 MG / 2 DAY
     Dates: start: 202108, end: 202110
  2. ASPIRIN [Concomitant]
     Active Substance: ASPIRIN
     Dosage: TROMBYL 75 MG
  3. CITALOPRAM [Concomitant]
     Active Substance: CITALOPRAM HYDROBROMIDE
     Dosage: CITALOPRAM 20 MG
  4. BISOPROLOL FUMARATE [Concomitant]
     Active Substance: BISOPROLOL FUMARATE
     Dosage: EMCONCOR CHF 2,5 MG
  5. SILDENAFIL [Concomitant]
     Active Substance: SILDENAFIL
     Dosage: SILDENAFIL NAVAMEDIC 50 MG
  6. EPIPEN [Concomitant]
     Active Substance: EPINEPHRINE
     Dosage: 300 MCG
  7. ATORVASTATIN [Concomitant]
     Active Substance: ATORVASTATIN
     Dosage: ATORVASTATIN 40 MG
  8. ENALAPRIL [Concomitant]
     Active Substance: ENALAPRIL
     Dosage: ENALAPRIL 10 MG
  9. DESLORATADINE [Concomitant]
     Active Substance: DESLORATADINE
     Dosage: DESLORATADINE 5 MG
  10. ALLOPURINOL [Concomitant]
     Active Substance: ALLOPURINOL
     Dosage: ALLOPURINOL NORDIC DRUGS 100 MG

REACTIONS (1)
  - Acute hepatic failure [Not Recovered/Not Resolved]

NARRATIVE: CASE EVENT DATE: 20211012
